FAERS Safety Report 7028748-3 (Version None)
Quarter: 2010Q4

REPORT INFORMATION
  Report Type: 
  Country: None (occurrence: None)
  Receive Date: 20101004
  Receipt Date: 20101004
  Transmission Date: 20110411
  Serious: Yes (Hospitalization)
  Sender: FDA-Public Use
  Company Number: None

PATIENT
  Sex: Male
  Weight: 31.3 kg

DRUGS (2)
  1. CLOFARABINE   GENZYME [Suspect]
     Indication: DISEASE RECURRENCE
     Dosage: 48 MG QD IV DRIP
     Route: 041
  2. CLOFARABINE   GENZYME [Suspect]
     Indication: HODGKIN'S DISEASE
     Dosage: 48 MG QD IV DRIP
     Route: 041

REACTIONS (11)
  - BLOOD CULTURE POSITIVE [None]
  - DEHYDRATION [None]
  - HYPOTENSION [None]
  - LIP HAEMORRHAGE [None]
  - LIP OEDEMA [None]
  - NAUSEA [None]
  - ORAL PAIN [None]
  - OROPHARYNGEAL PAIN [None]
  - PYREXIA [None]
  - STOMATITIS [None]
  - VOMITING [None]
